FAERS Safety Report 23848924 (Version 2)
Quarter: 2024Q3

REPORT INFORMATION
  Report Type: Spontaneous
  Country: CA (occurrence: CA)
  Receive Date: 20240513
  Receipt Date: 20240825
  Transmission Date: 20241017
  Serious: Yes (Hospitalization, Other)
  Sender: BAXTER
  Company Number: CA-BAXTER-2024BAX018005

PATIENT
  Sex: Male
  Weight: 38 kg

DRUGS (15)
  1. MAGNESIUM SULFATE [Suspect]
     Active Substance: MAGNESIUM SULFATE\MAGNESIUM SULFATE HEPTAHYDRATE
     Indication: Product used for unknown indication
     Dosage: (DOSAGE FORM: NOT SPECIFIED) AT AN UNSPECIFIED DOSE AND FREQUENCY
     Route: 065
  2. ADVAIR HFA [Suspect]
     Active Substance: FLUTICASONE PROPIONATE\SALMETEROL XINAFOATE
     Indication: Product use in unapproved indication
     Dosage: (DOSAGE FORM: NOT SPECIFIED) AT AN UNSPECIFIED DOSE AND FREQUENCY
     Route: 065
  3. HYDROCORTISONE [Suspect]
     Active Substance: HYDROCORTISONE\HYDROCORTISONE ACETATE
     Indication: Product use in unapproved indication
     Dosage: (DOSAGE FORM: NOT SPECIFIED) AT AN UNSPECIFIED DOSE AND FREQUENCY
     Route: 065
  4. HYDROCORTISONE [Suspect]
     Active Substance: HYDROCORTISONE\HYDROCORTISONE ACETATE
     Dosage: (DOSAGE FORM: NOT SPECIFIED) 12.5 MILLIGRAMS AND FREQUENCY
     Route: 065
  5. LANSOPRAZOLE [Suspect]
     Active Substance: LANSOPRAZOLE
     Indication: Product used for unknown indication
     Dosage: (DOSAGE FORM: CAPSULE, DELAYED RELEASE) AT AN UNSPECIFIED DOSE AND FREQUENCY
     Route: 065
  6. SYMBICORT [Suspect]
     Active Substance: BUDESONIDE\FORMOTEROL FUMARATE DIHYDRATE
     Indication: Product used for unknown indication
     Dosage: (DOSAGE FORM: POWDER) AT AN UNSPECIFIED DOSE AND FREQUENCY
  7. ALVESCO [Suspect]
     Active Substance: CICLESONIDE
     Indication: Product used for unknown indication
     Dosage: (DOSAGE FORM: AEROSOL, METERED DOSE) AT AN UNSPECIFIED DOSE AND FREQUENCY
     Route: 065
  8. CICLESONIDE [Suspect]
     Active Substance: CICLESONIDE
     Indication: Product used for unknown indication
     Dosage: (DOSAGE FORM: NOT SPECIFIED) AT AN UNSPECIFIED DOSE AND FREQUENCY
     Route: 065
  9. PREDNISONE [Suspect]
     Active Substance: PREDNISONE
     Indication: Product used for unknown indication
     Dosage: DOSAGE FORM: NOT SPECIFIED
     Route: 065
  10. BUDESONIDE\FORMOTEROL FUMARATE [Suspect]
     Active Substance: BUDESONIDE\FORMOTEROL FUMARATE
     Indication: Product used for unknown indication
     Dosage: DOSAGE FORM; NOT SPECIFIED, UNSPECIFIED DOSE AND FREQUENCY
     Route: 065
  11. ALBUTEROL SULFATE [Suspect]
     Active Substance: ALBUTEROL SULFATE
     Indication: Product used for unknown indication
     Dosage: UNK
     Route: 065
  12. ALBUTEROL SULFATE [Suspect]
     Active Substance: ALBUTEROL SULFATE
     Dosage: 1 MG, UNSPECIFIED FREQUENCY
     Route: 065
  13. TIOTROPIUM BROMIDE MONOHYDRATE [Suspect]
     Active Substance: TIOTROPIUM BROMIDE MONOHYDRATE
     Indication: Product used for unknown indication
     Dosage: 2 DOSAGE FORMS 1 EVERY 12 HOURS
     Route: 065
  14. ALBUTEROL SULFATE [Suspect]
     Active Substance: ALBUTEROL SULFATE
     Indication: Product used for unknown indication
     Dosage: DOSAGE FORM: INHALATION VAPOUR, LIQUID, 1 MG, UNSPECIFIED FREQUENCY
     Route: 065
  15. VITAMIN D [Suspect]
     Active Substance: VITAMIN D NOS
     Indication: Product used for unknown indication
     Dosage: DOSAGE FORM: NOT SPECIFIED
     Route: 065

REACTIONS (24)
  - Adrenal insufficiency [Recovered/Resolved]
  - Adrenal suppression [Recovered/Resolved]
  - Angioedema [Recovered/Resolved]
  - Asthma [Recovered/Resolved]
  - Back pain [Recovered/Resolved]
  - Bronchiectasis [Recovered/Resolved]
  - Disease recurrence [Recovered/Resolved]
  - Dyspnoea [Recovered/Resolved]
  - Eczema [Recovered/Resolved]
  - Erythema [Recovered/Resolved]
  - Gingival disorder [Recovered/Resolved]
  - Lip swelling [Recovered/Resolved]
  - Loss of personal independence in daily activities [Recovered/Resolved]
  - Oral disorder [Recovered/Resolved]
  - Rash [Recovered/Resolved]
  - Respiratory arrest [Recovered/Resolved]
  - Respiratory disorder [Recovered/Resolved]
  - Skin irritation [Recovered/Resolved]
  - Skin lesion [Recovered/Resolved]
  - Sleep disorder due to a general medical condition [Recovered/Resolved]
  - Therapeutic product effect incomplete [Recovered/Resolved]
  - Urticaria [Recovered/Resolved]
  - Wheezing [Recovered/Resolved]
  - Obstructive airways disorder [Recovered/Resolved]
